FAERS Safety Report 11716241 (Version 2)
Quarter: 2015Q4

REPORT INFORMATION
  Report Type: Spontaneous
  Country: US (occurrence: US)
  Receive Date: 20151104
  Receipt Date: 20151110
  Transmission Date: 20160304
  Serious: No
  Sender: FDA-Public Use
  Company Number: US-ELI_LILLY_AND_COMPANY-US201109000532

PATIENT
  Age: 58 Year
  Sex: Female

DRUGS (11)
  1. FORTEO [Suspect]
     Active Substance: TERIPARATIDE
     Dosage: 20 UG, QD
     Route: 065
  2. FORTEO [Suspect]
     Active Substance: TERIPARATIDE
     Dosage: 20 UG, QD
     Route: 065
  3. FORTEO [Suspect]
     Active Substance: TERIPARATIDE
     Dosage: 20 UG, QD
     Route: 065
  4. MULTIVITAMIN [Concomitant]
     Active Substance: VITAMINS
  5. FORTEO [Suspect]
     Active Substance: TERIPARATIDE
     Indication: OSTEOPOROSIS
     Dosage: 20 UG, QD
     Route: 065
     Dates: start: 20110824
  6. FORTEO [Suspect]
     Active Substance: TERIPARATIDE
     Dosage: 20 UG, QD
     Route: 065
  7. FORTEO [Suspect]
     Active Substance: TERIPARATIDE
     Dosage: 20 UG, QD
     Route: 065
  8. CITRACAL                           /00751520/ [Concomitant]
  9. FORTEO [Suspect]
     Active Substance: TERIPARATIDE
     Dosage: 20 UG, QD
     Route: 065
  10. FORTEO [Suspect]
     Active Substance: TERIPARATIDE
     Dosage: 20 UG, QD
     Route: 065
  11. AZATHIOPRINE. [Concomitant]
     Active Substance: AZATHIOPRINE
     Dosage: UNK
     Dates: start: 2006

REACTIONS (37)
  - Exostosis [Unknown]
  - Cellulitis [Unknown]
  - Nausea [Not Recovered/Not Resolved]
  - Drug dose omission [Unknown]
  - Hypotension [Unknown]
  - Dysgeusia [Not Recovered/Not Resolved]
  - Pain in extremity [Unknown]
  - Injection site erythema [Not Recovered/Not Resolved]
  - Injury associated with device [Unknown]
  - Abdominal discomfort [Unknown]
  - Diarrhoea [Unknown]
  - Injection site bruising [Not Recovered/Not Resolved]
  - Injection site pain [Unknown]
  - Blood alkaline phosphatase increased [Not Recovered/Not Resolved]
  - Liver disorder [Not Recovered/Not Resolved]
  - Peripheral swelling [Not Recovered/Not Resolved]
  - Blood calcium increased [Unknown]
  - Peripheral vascular disorder [Unknown]
  - Inflammation [Not Recovered/Not Resolved]
  - Erythema [Unknown]
  - Injection site urticaria [Unknown]
  - Muscle spasms [Unknown]
  - Osteoarthritis [Unknown]
  - Influenza like illness [Unknown]
  - Feeling abnormal [Unknown]
  - Pain [Unknown]
  - Headache [Unknown]
  - Injection site haemorrhage [Not Recovered/Not Resolved]
  - Pain in extremity [Not Recovered/Not Resolved]
  - Erythema [Not Recovered/Not Resolved]
  - Pruritus [Recovered/Resolved]
  - Fatigue [Not Recovered/Not Resolved]
  - Pruritus [Unknown]
  - Pain [Not Recovered/Not Resolved]
  - Injection site bruising [Unknown]
  - Injection site swelling [Unknown]
  - Drug dose omission [Unknown]

NARRATIVE: CASE EVENT DATE: 201108
